FAERS Safety Report 9122472 (Version 1)
Quarter: 2013Q1

REPORT INFORMATION
  Report Type: Spontaneous
  Country: US (occurrence: None)
  Receive Date: 20130130
  Receipt Date: 20130130
  Transmission Date: 20140127
  Serious: Yes (Death)
  Sender: FDA-Public Use
  Company Number: B0859728A

PATIENT
  Age: 47 Year
  Sex: Female

DRUGS (6)
  1. QUETIAPINE [Suspect]
     Route: 048
  2. BUPROPION HYDROCHLORIDE [Suspect]
     Route: 048
  3. SERTRALINE [Suspect]
     Route: 048
  4. GABAPENTIN [Suspect]
     Route: 048
  5. LORAZEPAM [Suspect]
     Route: 048
  6. OXCARBAZEPINE [Suspect]
     Route: 048

REACTIONS (2)
  - Completed suicide [None]
  - Incorrect route of drug administration [None]
